FAERS Safety Report 6434384-X (Version None)
Quarter: 2009Q4

REPORT INFORMATION
  Report Type: 
  Country: None (occurrence: None)
  Receive Date: 20091110
  Receipt Date: 20081201
  Transmission Date: 20100525
  Serious: No
  Sender: FDA-Public Use
  Company Number: US-ASTRAZENECA-2008UW26788

PATIENT
  Age: 73 Year
  Sex: Female
  Weight: 68.9 kg

DRUGS (1)
  1. PRILOSEC OTC [Suspect]
     Indication: GASTROOESOPHAGEAL REFLUX DISEASE
     Dosage: I TABLET DAILY
     Route: 048
     Dates: start: 20061201, end: 20081130

REACTIONS (3)
  - BLOOD ALKALINE PHOSPHATASE INCREASED [None]
  - HEPATOMEGALY [None]
  - SPLENOMEGALY [None]
